FAERS Safety Report 8851002 (Version 4)
Quarter: 2013Q2

REPORT INFORMATION
  Report Type: Spontaneous
  Country: US (occurrence: US)
  Receive Date: 20121019
  Receipt Date: 20130401
  Transmission Date: 20140414
  Serious: Yes (Other)
  Sender: FDA-Public Use
  Company Number: US-PFIZER INC-2012257256

PATIENT
  Age: 72 Year
  Sex: Male
  Weight: 93.42 kg

DRUGS (5)
  1. SUTENT [Suspect]
     Indication: PANCREATIC NEUROENDOCRINE TUMOUR METASTATIC
     Dosage: 37.5 MG, (25MG AND 12.5MG) DAILY
     Dates: start: 20120201
  2. SUTENT [Suspect]
     Dosage: 37.5 MG, (3X12.5MG CAPSULES), CYCLIC
     Dates: start: 20121031, end: 201301
  3. NADOLOL [Concomitant]
     Indication: HYPERTENSION
     Dosage: 20 MG, UNK
     Route: 048
  4. VERAPAMIL [Concomitant]
     Dosage: 100 MG, 1X/DAY
  5. LOSARTAN [Concomitant]
     Dosage: 100 MG, 1X/DAY

REACTIONS (14)
  - Hypertension [Recovered/Resolved]
  - Off label use [Unknown]
  - Hypertension [Unknown]
  - Skin exfoliation [Unknown]
  - Laboratory test abnormal [Unknown]
  - Red blood cell count abnormal [Unknown]
  - Mean cell haemoglobin [Unknown]
  - Mean cell volume abnormal [Unknown]
  - Dysgeusia [Unknown]
  - Glossodynia [Unknown]
  - Palmar-plantar erythrodysaesthesia syndrome [Unknown]
  - Skin papilloma [Unknown]
  - Pain in extremity [Not Recovered/Not Resolved]
  - Skin exfoliation [Not Recovered/Not Resolved]
